FAERS Safety Report 4636886-5 (Version None)
Quarter: 2005Q2

REPORT INFORMATION
  Report Type: 
  Country: None (occurrence: None)
  Receive Date: 20050415
  Receipt Date: 20041202
  Transmission Date: 20051028
  Serious: Yes (Hospitalization)
  Sender: FDA-Public Use
  Company Number: DE-MERCK-0412DEU00041

PATIENT
  Age: 34 Year
  Sex: Male

DRUGS (2)
  1. PROPECIA [Suspect]
     Indication: MALE PATTERN BALDNESS
     Route: 048
     Dates: start: 19991213
  2. PROPECIA [Suspect]
     Route: 048
     Dates: end: 20041206

REACTIONS (14)
  - ALANINE AMINOTRANSFERASE INCREASED [None]
  - AUTONOMIC NERVOUS SYSTEM IMBALANCE [None]
  - BLOOD FOLLICLE STIMULATING HORMONE DECREASED [None]
  - BLOOD LUTEINISING HORMONE DECREASED [None]
  - BLOOD TESTOSTERONE DECREASED [None]
  - CONDITION AGGRAVATED [None]
  - CONJUNCTIVITIS ALLERGIC [None]
  - FLUSHING [None]
  - GAMMA-GLUTAMYLTRANSFERASE INCREASED [None]
  - HEPATIC STEATOSIS [None]
  - HYPERSENSITIVITY [None]
  - HYPERTHYROIDISM [None]
  - MALE PATTERN BALDNESS [None]
  - MEDICATION ERROR [None]
